FAERS Safety Report 5884116-9 (Version None)
Quarter: 2008Q3

REPORT INFORMATION
  Report Type: 
  Country: None (occurrence: None)
  Receive Date: 20080911
  Receipt Date: 20080829
  Transmission Date: 20090109
  Serious: Yes (Life-Threatening, Hospitalization)
  Sender: FDA-Public Use
  Company Number: 2008AL009684

PATIENT
  Age: 73 Year
  Sex: Female

DRUGS (10)
  1. DIGOXIN [Suspect]
     Indication: CARDIAC DISORDER
     Dosage: 0.25MG, DAILY,  PO
     Route: 048
     Dates: start: 20080108, end: 20080215
  2. ASPIRIN [Concomitant]
  3. REVATIO [Concomitant]
  4. TRACLEER [Concomitant]
  5. COUMADIN [Concomitant]
  6. KLOR-CON [Concomitant]
  7. ESTER-C [Concomitant]
  8. TAMOXIFEN CITRATE [Concomitant]
  9. POTASSIUM CHLORIDE [Concomitant]
  10. LASIX [Concomitant]

REACTIONS (4)
  - ASTHENIA [None]
  - BRADYCARDIA [None]
  - CARDIOACTIVE DRUG LEVEL INCREASED [None]
  - THERAPEUTIC AGENT TOXICITY [None]
